FAERS Safety Report 14789106 (Version 1)
Quarter: 2018Q2

REPORT INFORMATION
  Report Type: Spontaneous
  Country: US (occurrence: US)
  Receive Date: 20180413
  Receipt Date: 20180413
  Transmission Date: 20180711
  Serious: Yes (Disabling)
  Sender: FDA-Public Use
  Company Number: None

PATIENT
  Age: 60 Year
  Sex: Male

DRUGS (4)
  1. OMNIPAQUE [Suspect]
     Active Substance: IOHEXOL
  2. VANCOMYCIN [Concomitant]
     Active Substance: VANCOMYCIN
     Dates: start: 20170929, end: 20171001
  3. DEFINITY [Concomitant]
     Active Substance: PERFLUTREN
     Dates: start: 20171001, end: 20171001
  4. PIPERACILLIN TAZOBACTAM (ZOSYN) [Concomitant]
     Dates: start: 20170929, end: 20171003

REACTIONS (4)
  - Sepsis [None]
  - Nephropathy [None]
  - Tubulointerstitial nephritis [None]
  - Renal impairment [None]

NARRATIVE: CASE EVENT DATE: 20171001
